FAERS Safety Report 5210692-5 (Version None)
Quarter: 2007Q1

REPORT INFORMATION
  Report Type: 
  Country: None (occurrence: None)
  Receive Date: 20070117
  Receipt Date: 20070112
  Transmission Date: 20070707
  Serious: Yes (Other)
  Sender: FDA-Public Use
  Company Number: US-GLAXOSMITHKLINE-B0454061A

PATIENT
  Age: 44 Year
  Sex: Female

DRUGS (1)
  1. EPOPROSTENOL SODIUM [Suspect]
     Indication: PULMONARY HYPERTENSION
     Dosage: 130NGKM UNKNOWN
     Route: 042

REACTIONS (2)
  - HYPOXIA [None]
  - OXYGEN SATURATION DECREASED [None]
